FAERS Safety Report 8357169-6 (Version None)
Quarter: 2012Q2

REPORT INFORMATION
  Report Type: 
  Country: None (occurrence: None)
  Receive Date: 20120514
  Receipt Date: 20120509
  Transmission Date: 20120825
  Serious: Yes (Other)
  Sender: FDA-Public Use
  Company Number: US-PFIZER INC-2012086412

PATIENT
  Sex: Female

DRUGS (2)
  1. DILANTIN [Suspect]
     Indication: EPILEPSY
     Dosage: 100 MG, 1 CAPSULE, 3 TIMES A DAY
     Route: 048
     Dates: start: 19750101
  2. SYNTHROID [Concomitant]
     Dosage: UNK

REACTIONS (1)
  - PERSONALITY DISORDER [None]
